FAERS Safety Report 6317707-1 (Version None)
Quarter: 2009Q3

REPORT INFORMATION
  Report Type: 
  Country: None (occurrence: None)
  Receive Date: 20090820
  Receipt Date: 20090820
  Transmission Date: 20100115
  Serious: Yes (Hospitalization)
  Sender: FDA-Public Use
  Company Number: None

PATIENT
  Age: 35 Year
  Sex: Male
  Weight: 71.6683 kg

DRUGS (1)
  1. PROPECIA [Suspect]
     Indication: ALOPECIA
     Dosage: 1MG ONCE A DAY PO
     Route: 048

REACTIONS (20)
  - AMNESIA [None]
  - ANGER [None]
  - CHEST PAIN [None]
  - COGNITIVE DISORDER [None]
  - DEPRESSION [None]
  - DIZZINESS [None]
  - DYSPNOEA [None]
  - ERECTILE DYSFUNCTION [None]
  - HEADACHE [None]
  - HOT FLUSH [None]
  - HYPERTENSION [None]
  - IMPATIENCE [None]
  - INSOMNIA [None]
  - IRRITABILITY [None]
  - MALAISE [None]
  - NERVOUSNESS [None]
  - PAIN [None]
  - PALPITATIONS [None]
  - PANIC ATTACK [None]
  - PERSONALITY DISORDER [None]
